FAERS Safety Report 18551488 (Version 2)
Quarter: 2020Q4

REPORT INFORMATION
  Report Type: Report from Study
  Country: MX (occurrence: MX)
  Receive Date: 20201126
  Receipt Date: 20201226
  Transmission Date: 20210114
  Serious: Yes (Death)
  Sender: FDA-Public Use
  Company Number: PHHY2019MX089866

PATIENT
  Age: 79 Year
  Sex: Female
  Weight: 80 kg

DRUGS (2)
  1. ENTRESTO [Suspect]
     Active Substance: SACUBITRIL\VALSARTAN
     Indication: CARDIAC DISORDER
     Dosage: 0.5 DF (50 MG), BID (HALF TABLET IN THE MORNING AND HALF TABLET IN THE NIGHT)
     Route: 048
     Dates: start: 20190303
  2. ENTRESTO [Suspect]
     Active Substance: SACUBITRIL\VALSARTAN
     Dosage: 0.5 MG, BID (50 MG 1/2 TABLET BID)
     Route: 048

REACTIONS (4)
  - Cardiac failure [Fatal]
  - Prescribed underdose [Unknown]
  - Product use in unapproved indication [Unknown]
  - Wrong technique in product usage process [Unknown]

NARRATIVE: CASE EVENT DATE: 20190303
